FAERS Safety Report 8444159-8 (Version None)
Quarter: 2012Q2

REPORT INFORMATION
  Report Type: 
  Country: None (occurrence: None)
  Receive Date: 20120323
  Receipt Date: 20110708
  Transmission Date: 20120825
  Serious: Yes (Hospitalization)
  Sender: FDA-Public Use
  Company Number: 163-21880-11053419

PATIENT
  Age: 67 Year
  Sex: Female
  Weight: 64.4108 kg

DRUGS (16)
  1. METAMUCIL (METAMUCIL ^PROCTER + GAMBLE^) (UNKNOWN) [Concomitant]
  2. ONE-A-DAY WOMEN'S (ONE-A-DAY WOMEN'S) (UNKNOWN) [Concomitant]
  3. VYTORIN (INEGY) (UNKNOWN) [Concomitant]
  4. ASPIRIN [Concomitant]
  5. BACTRIM [Concomitant]
  6. POTASSIUM (POTASSIUM) (UNKNOWN) [Concomitant]
  7. FLUCONAZOLE [Concomitant]
  8. CALTRATE (CALCIUM CARBONATE) (UNKNOWN) [Concomitant]
  9. OMEGA 3 (FISH OIL) (UNKNOWN) [Concomitant]
  10. GLUCOSAMINE AND CHONDROITIN (GLUCOSAMINE W/CHONDROITIN SULFATE) (UNKNO [Concomitant]
  11. VITAMIN D (ERGOCALCIFEROL) (UNKNOWN) [Concomitant]
  12. REVLIMID [Suspect]
     Indication: MYELODYSPLASTIC SYNDROME
     Dosage: 10 MG, DAILY X 21 DAYS, PO 5 MG, DAILY X 21 DAYS, PO
     Route: 048
     Dates: start: 20110501
  13. REVLIMID [Suspect]
     Indication: MYELODYSPLASTIC SYNDROME
     Dosage: 10 MG, DAILY X 21 DAYS, PO 5 MG, DAILY X 21 DAYS, PO
     Route: 048
     Dates: start: 20110501, end: 20110516
  14. LOSARTAN/HYDROCHLOROTHIAZIDE (HYZAAR) (UNKNOWN) [Concomitant]
  15. SPIRONOLACTONE [Concomitant]
  16. ACYCLOVIR (ACICLOVIR) (UNKNOWN) [Concomitant]

REACTIONS (3)
  - WHITE BLOOD CELL COUNT DECREASED [None]
  - PULMONARY EMBOLISM [None]
  - NEUTROPHIL COUNT DECREASED [None]
